APPROVED DRUG PRODUCT: RETROVIR
Active Ingredient: ZIDOVUDINE
Strength: 100MG
Dosage Form/Route: CAPSULE;ORAL
Application: N019655 | Product #001 | TE Code: AB
Applicant: VIIV HEALTHCARE CO
Approved: Mar 19, 1987 | RLD: Yes | RS: Yes | Type: RX